FAERS Safety Report 12336335 (Version 1)
Quarter: 2016Q2

REPORT INFORMATION
  Report Type: Spontaneous
  Country: US (occurrence: None)
  Receive Date: 20160504
  Receipt Date: 20160504
  Transmission Date: 20160815
  Serious: No
  Sender: FDA-Public Use
  Company Number: None

PATIENT
  Age: 61 Year
  Sex: Female
  Weight: 71.22 kg

DRUGS (9)
  1. SYNTHROID [Concomitant]
     Active Substance: LEVOTHYROXINE SODIUM
  2. AMBIEN [Concomitant]
     Active Substance: ZOLPIDEM TARTRATE
  3. CO-Q 10 [Concomitant]
  4. BOTOX [Suspect]
     Active Substance: ONABOTULINUMTOXINA
     Indication: SKIN WRINKLING
     Route: 058
     Dates: start: 20160425, end: 20160425
  5. CLONAZEPAM. [Concomitant]
     Active Substance: CLONAZEPAM
  6. MAGNESIUM [Concomitant]
     Active Substance: MAGNESIUM
  7. BIOTIN [Concomitant]
     Active Substance: BIOTIN
  8. LISINOPRIL. [Concomitant]
     Active Substance: LISINOPRIL
  9. NIACIN. [Concomitant]
     Active Substance: NIACIN

REACTIONS (4)
  - Headache [None]
  - Initial insomnia [None]
  - Nervousness [None]
  - Insomnia [None]

NARRATIVE: CASE EVENT DATE: 20160425
